FAERS Safety Report 18021786 (Version 5)
Quarter: 2021Q1

REPORT INFORMATION
  Report Type: Other
  Country: FR (occurrence: FR)
  Receive Date: 20200715
  Receipt Date: 20210316
  Transmission Date: 20210419
  Serious: Yes (Hospitalization, Other)
  Sender: FDA-Public Use
  Company Number: FR-ROCHE-2634455

PATIENT
  Age: 64 Year
  Sex: Male
  Weight: 75 kg

DRUGS (14)
  1. BACTRIM [Concomitant]
     Active Substance: SULFAMETHOXAZOLE\TRIMETHOPRIM
     Indication: DYSPNOEA
     Route: 042
     Dates: start: 20200526, end: 20200604
  2. NITROGEN DIOXIDE (UNK INGREDIENTS) [Concomitant]
     Indication: PNEUMONIA
     Dates: start: 20200604, end: 20200609
  3. ATEZOLIZUMAB. [Suspect]
     Active Substance: ATEZOLIZUMAB
     Indication: NON-SMALL CELL LUNG CANCER METASTATIC
     Dosage: SUBSEQUENT DOSES OF ATEZOLIZUMAB 09/JAN/2020, 30/JAN/2020, 20/FEB/2020, 12/MAR/2020, 01/MAR/2020.?ON
     Route: 042
     Dates: start: 20191219
  4. PARACETAMOL [Concomitant]
     Active Substance: ACETAMINOPHEN
     Indication: MUSCULOSKELETAL CHEST PAIN
     Dates: start: 20200115, end: 20200609
  5. LOW MOLECULAR WEIGHT HEPARIN [Concomitant]
     Active Substance: UNSPECIFIED INGREDIENT
     Indication: PNEUMONIA
     Dates: start: 20200524, end: 20200609
  6. CISPLATINE [Concomitant]
     Active Substance: CISPLATIN
     Indication: NEOPLASM MALIGNANT
  7. ROVAMYCINE [Concomitant]
     Active Substance: SPIRAMYCIN
     Indication: DYSPNOEA
     Dates: start: 20200525, end: 20200528
  8. AXEPIM [Concomitant]
     Active Substance: CEFEPIME HYDROCHLORIDE
     Indication: DYSPNOEA
     Dates: start: 20200604, end: 20200609
  9. TAZOCILLINE [Concomitant]
     Active Substance: PIPERACILLIN SODIUM\TAZOBACTAM SODIUM
     Dates: start: 20200525, end: 20200528
  10. AVASTIN [Concomitant]
     Active Substance: BEVACIZUMAB
     Indication: NEOPLASM MALIGNANT
  11. NASONEX [Concomitant]
     Active Substance: MOMETASONE FUROATE
     Indication: RHINITIS
     Dates: start: 20200218, end: 20200609
  12. CLAFORAN [Concomitant]
     Active Substance: CEFOTAXIME SODIUM
     Indication: DYSPNOEA
     Dates: start: 20200524, end: 20200604
  13. ZYVOXID [Concomitant]
     Active Substance: LINEZOLID
     Indication: DYSPNOEA
     Dates: start: 20200604, end: 20200609
  14. ROVAMYCINE [Concomitant]
     Active Substance: SPIRAMYCIN
     Dates: start: 20200524, end: 20200525

REACTIONS (3)
  - Atrial flutter [Not Recovered/Not Resolved]
  - Diabetes mellitus [Not Recovered/Not Resolved]
  - Colitis [Recovered/Resolved]

NARRATIVE: CASE EVENT DATE: 20200301
